FAERS Safety Report 6244101-4 (Version None)
Quarter: 2009Q2

REPORT INFORMATION
  Report Type: 
  Country: None (occurrence: None)
  Receive Date: 20090623
  Receipt Date: 20090623
  Transmission Date: 20091009
  Serious: Yes (Hospitalization)
  Sender: FDA-Public Use
  Company Number: None

PATIENT
  Sex: Female
  Weight: 108.1 kg

DRUGS (2)
  1. CARBOPLATIN [Suspect]
     Dosage: 160 MG
  2. TAXOL [Suspect]
     Dosage: 90 MG

REACTIONS (3)
  - DEHYDRATION [None]
  - DIARRHOEA [None]
  - DYSPNOEA [None]
